FAERS Safety Report 6110439-4 (Version None)
Quarter: 2009Q1

REPORT INFORMATION
  Report Type: 
  Country: None (occurrence: None)
  Receive Date: 20090310
  Receipt Date: 20090225
  Transmission Date: 20090719
  Serious: Yes (Life-Threatening, Hospitalization)
  Sender: FDA-Public Use
  Company Number: NL-ELI_LILLY_AND_COMPANY-NL200901002566

PATIENT
  Sex: Male

DRUGS (6)
  1. ZYPREXA [Suspect]
     Indication: AGGRESSION
     Dosage: 5 MG, UNK
     Route: 048
     Dates: start: 20081203, end: 20081208
  2. ZYPREXA [Suspect]
     Dosage: 5 MG, 2/D
     Route: 048
     Dates: start: 20081209
  3. HYDROCHLOROTHIAZIDE [Concomitant]
     Dosage: 12.5 MG, DAILY (1/D)
     Dates: start: 20081020, end: 20081224
  4. LORAZEPAM [Concomitant]
     Dosage: 1 MG, DAILY (1/D)
     Route: 048
     Dates: start: 20081021
  5. MOVICOLON [Concomitant]
     Dates: start: 20081223
  6. BISACODYL [Concomitant]

REACTIONS (5)
  - CONFUSIONAL STATE [None]
  - DEHYDRATION [None]
  - DEPRESSED LEVEL OF CONSCIOUSNESS [None]
  - FAECALOMA [None]
  - HYPERNATRAEMIA [None]
